FAERS Safety Report 4726126-0 (Version None)
Quarter: 2005Q3

REPORT INFORMATION
  Report Type: 
  Country: None (occurrence: None)
  Receive Date: 20050725
  Receipt Date: 20050711
  Transmission Date: 20060218
  Serious: Yes (Other)
  Sender: FDA-Public Use
  Company Number: 215976

PATIENT
  Age: 67 Year
  Sex: Female

DRUGS (2)
  1. MABTHERA           (RITUXIMAB)      CONC FOR SOLUTION FOR INFUSION [Suspect]
     Indication: MANTLE CELL LYMPHOMA
  2. PEG-INTRON [Suspect]
     Indication: MANTLE CELL LYMPHOMA
     Dosage: SEE IMAGE
     Dates: start: 20050530, end: 20050530

REACTIONS (1)
  - NEUTROPENIA [None]
